FAERS Safety Report 4267194-2 (Version None)
Quarter: 2004Q1

REPORT INFORMATION
  Report Type: 
  Country: None (occurrence: None)
  Receive Date: 20040107
  Receipt Date: 20031223
  Transmission Date: 20041129
  Serious: Yes (Hospitalization)
  Sender: FDA-Public Use
  Company Number: F01200301524

PATIENT
  Age: 58 Year
  Sex: Female

DRUGS (2)
  1. OXALIPLATIN - SOLUTIN  70 MG/M2 [Suspect]
     Indication: NON-SMALL CELL LUNG CANCER
     Dosage: 70 MG/M2 ON DAY 1 AND DAY 8; INTRAVENOUS NOS
     Route: 042
     Dates: start: 20031216, end: 20031216
  2. GEMCITABINE - SOLUTION - 1250 MG/M2 [Suspect]
     Dosage: 1250 MG/M2 ON DAY 1 AND DAY 8; INTRAVENOUS NOS
     Route: 042
     Dates: start: 20031216, end: 20031216

REACTIONS (7)
  - DYSPHAGIA [None]
  - LARYNGOSPASM [None]
  - ODYNOPHAGIA [None]
  - OESOPHAGEAL OBSTRUCTION [None]
  - OESOPHAGITIS [None]
  - ORAL PAIN [None]
  - PHARYNGOLARYNGEAL PAIN [None]
